FAERS Safety Report 8388381-8 (Version None)
Quarter: 2012Q2

REPORT INFORMATION
  Report Type: 
  Country: None (occurrence: None)
  Receive Date: 20120525
  Receipt Date: 20120514
  Transmission Date: 20120825
  Serious: Yes (Hospitalization, Other)
  Sender: FDA-Public Use
  Company Number: BE-ELI_LILLY_AND_COMPANY-BE201109005592

PATIENT
  Age: 60 Year
  Sex: Male

DRUGS (2)
  1. OLANZAPINE [Suspect]
     Dosage: 300 MG, UNK
  2. DEPAKENE [Concomitant]
     Dosage: 1000 MG, UNK
     Route: 048

REACTIONS (6)
  - EXTRAPYRAMIDAL DISORDER [None]
  - SEDATION [None]
  - CYSTITIS [None]
  - SOMNOLENCE [None]
  - CONFUSIONAL STATE [None]
  - ASTHENIA [None]
